FAERS Safety Report 7232632-X (Version None)
Quarter: 2011Q1

REPORT INFORMATION
  Report Type: 
  Country: None (occurrence: None)
  Receive Date: 20110119
  Receipt Date: 20110114
  Transmission Date: 20110831
  Serious: Yes (Life-Threatening, Other)
  Sender: FDA-Public Use
  Company Number: PHHY2010JP43565

PATIENT
  Sex: Male

DRUGS (6)
  1. DIOVAN [Concomitant]
     Indication: HYPERTENSION
     Dosage: 160 MG, UNK
     Route: 048
  2. MAGMITT KENEI [Concomitant]
     Dosage: UNK
     Route: 048
     Dates: start: 20101113
  3. TAMSULOSIN HCL [Concomitant]
     Dosage: 0.2 MG, UNK
     Route: 048
  4. INTERFERON ALFA [Concomitant]
     Dosage: UNK
     Dates: start: 20080201
  5. AFINITOR [Suspect]
     Indication: METASTATIC RENAL CELL CARCINOMA
     Dosage: 5 MG, DAILY
     Route: 048
     Dates: start: 20100430, end: 20100506
  6. AFINITOR [Suspect]
     Dosage: 5 MG, DAILY
     Route: 048
     Dates: start: 20100512, end: 20100524

REACTIONS (3)
  - ACUTE MYELOID LEUKAEMIA [None]
  - MUSCULOSKELETAL PAIN [None]
  - THROMBOCYTOPENIA [None]
